FAERS Safety Report 8233658-X (Version None)
Quarter: 2012Q1

REPORT INFORMATION
  Report Type: 
  Country: None (occurrence: None)
  Receive Date: 20120326
  Receipt Date: 20120320
  Transmission Date: 20120608
  Serious: Yes (Death, Hospitalization)
  Sender: FDA-Public Use
  Company Number: PHEH2011US011203

PATIENT
  Sex: Female
  Weight: 89.4 kg

DRUGS (7)
  1. HEPARIN [Suspect]
  2. GLEEVEC [Suspect]
     Indication: GASTROINTESTINAL STROMAL TUMOUR
     Dosage: 800 MG, QD
     Route: 048
     Dates: start: 20110928, end: 20111114
  3. AMLODIPINE [Concomitant]
     Dosage: 10 MG, UNK
     Route: 048
  4. COZAAR [Concomitant]
     Indication: HYPERTENSION
     Dosage: 50 MG, UNK
     Route: 048
  5. WARFARIN SODIUM [Concomitant]
  6. METFORMIN HCL [Concomitant]
     Dosage: 500 MG, UNK
     Route: 048
  7. FUROSEMIDE [Concomitant]
     Indication: OEDEMA
     Dosage: 80 MG, UNK
     Route: 048

REACTIONS (7)
  - LACTIC ACIDOSIS [None]
  - NEPHROTIC SYNDROME [None]
  - NEOPLASM PROGRESSION [None]
  - DRUG INEFFECTIVE [None]
  - RENAL FAILURE ACUTE [None]
  - NEOPLASM MALIGNANT [None]
  - HEPARIN-INDUCED THROMBOCYTOPENIA [None]
